FAERS Safety Report 18531592 (Version 1)
Quarter: 2020Q4

REPORT INFORMATION
  Report Type: Report from Study
  Country: None (occurrence: US)
  Receive Date: 20201123
  Receipt Date: 20201123
  Transmission Date: 20210114
  Serious: Yes (Other)
  Sender: FDA-Public Use
  Company Number: US-ABBVIE-20K-163-3504932-00

PATIENT
  Sex: Female

DRUGS (1)
  1. HUMIRA [Suspect]
     Active Substance: ADALIMUMAB
     Indication: RHEUMATOID ARTHRITIS
     Route: 058

REACTIONS (10)
  - Hypoacusis [Unknown]
  - Arthritis [Recovering/Resolving]
  - Infection [Unknown]
  - Muscle tightness [Recovered/Resolved]
  - Myalgia [Recovered/Resolved]
  - Schizoaffective disorder [Not Recovered/Not Resolved]
  - Glucose tolerance impaired [Recovering/Resolving]
  - Depression [Not Recovered/Not Resolved]
  - Sinus disorder [Unknown]
  - Hypertension [Not Recovered/Not Resolved]
